FAERS Safety Report 17413934 (Version 1)
Quarter: 2020Q1

REPORT INFORMATION
  Report Type: Report from Study
  Country: DE (occurrence: DE)
  Receive Date: 20200213
  Receipt Date: 20200213
  Transmission Date: 20200409
  Serious: Yes (Other)
  Sender: FDA-Public Use
  Company Number: DE-BAXTER-2020BAX003223

PATIENT
  Age: 55 Year

DRUGS (4)
  1. DOXIL [Suspect]
     Active Substance: DOXORUBICIN HYDROCHLORIDE
     Indication: ANAPLASTIC LARGE-CELL LYMPHOMA
     Route: 065
  2. ENDOXAN 1G [Suspect]
     Active Substance: CYCLOPHOSPHAMIDE
     Indication: ANAPLASTIC LARGE-CELL LYMPHOMA
     Route: 065
  3. PREDNISONE. [Suspect]
     Active Substance: PREDNISONE
     Indication: ANAPLASTIC LARGE-CELL LYMPHOMA
     Route: 065
  4. BRENTUXIMAB VEDOTIN [Suspect]
     Active Substance: BRENTUXIMAB VEDOTIN
     Indication: ANAPLASTIC LARGE-CELL LYMPHOMA
     Route: 065
     Dates: start: 201706

REACTIONS (1)
  - Anaplastic large-cell lymphoma [Unknown]
